FAERS Safety Report 10103091 (Version 1)
Quarter: 2014Q2

REPORT INFORMATION
  Report Type: Spontaneous
  Country: CA (occurrence: CA)
  Receive Date: 20140424
  Receipt Date: 20140424
  Transmission Date: 20141212
  Serious: Yes (Hospitalization)
  Sender: FDA-Public Use
  Company Number: CA-GLAXOSMITHKLINE-A1069332A

PATIENT
  Age: 40 Year
  Sex: Male
  Weight: 70.5 kg

DRUGS (2)
  1. FLOLAN [Suspect]
     Indication: PULMONARY ARTERIAL HYPERTENSION
     Dosage: 45000NGML UNKNOWN
     Route: 042
     Dates: start: 20081212
  2. FLOLAN DILUENT [Suspect]
     Indication: PULMONARY ARTERIAL HYPERTENSION
     Route: 042
     Dates: start: 20081212

REACTIONS (7)
  - Cough [Unknown]
  - Arthralgia [Unknown]
  - Influenza like illness [Unknown]
  - Pyrexia [Unknown]
  - Dehydration [Unknown]
  - Oxygen saturation decreased [Unknown]
  - Viral infection [Unknown]
